FAERS Safety Report 6719873-2 (Version None)
Quarter: 2010Q2

REPORT INFORMATION
  Report Type: 
  Country: None (occurrence: None)
  Receive Date: 20100511
  Receipt Date: 20100507
  Transmission Date: 20101027
  Serious: Yes (Death)
  Sender: FDA-Public Use
  Company Number: PHHY2010CA28462

PATIENT

DRUGS (1)
  1. ALISKIREN ALI+ [Suspect]
     Indication: PROTEINURIA
     Dosage: 300 MG, DAILY
     Route: 048
     Dates: start: 20090716, end: 20100225

REACTIONS (1)
  - DEATH [None]
